FAERS Safety Report 10554143 (Version 2)
Quarter: 2014Q4

REPORT INFORMATION
  Report Type: Spontaneous
  Country: US (occurrence: US)
  Receive Date: 20141030
  Receipt Date: 20141030
  Transmission Date: 20150529
  Serious: Yes (Hospitalization, Other)
  Sender: FDA-Public Use
  Company Number: US-GLAXOSMITHKLINE-A0807670A

PATIENT
  Age: 76 Year
  Sex: Male

DRUGS (5)
  1. COMBIVENT [Concomitant]
     Active Substance: ALBUTEROL SULFATE\IPRATROPIUM BROMIDE
  2. LOVASTATIN. [Concomitant]
     Active Substance: LOVASTATIN
  3. ADVAIR HFA [Suspect]
     Active Substance: FLUTICASONE PROPIONATE\SALMETEROL XINAFOATE
     Indication: EMPHYSEMA
     Dosage: 230/21 MCG
     Route: 055
  4. SIMVASTATIN. [Concomitant]
     Active Substance: SIMVASTATIN
  5. ADVAIR HFA [Suspect]
     Active Substance: FLUTICASONE PROPIONATE\SALMETEROL XINAFOATE
     Indication: CHRONIC OBSTRUCTIVE PULMONARY DISEASE
     Dosage: 250/50 MCG
     Route: 055
     Dates: start: 20081101, end: 20141016

REACTIONS (6)
  - Candida infection [Unknown]
  - Bronchitis [Not Recovered/Not Resolved]
  - Pneumothorax [Recovered/Resolved]
  - Lung operation [Unknown]
  - Pulmonary function test decreased [Not Recovered/Not Resolved]
  - Drug ineffective [Not Recovered/Not Resolved]

NARRATIVE: CASE EVENT DATE: 2009
